FAERS Safety Report 21006793 (Version 3)
Quarter: 2022Q4

REPORT INFORMATION
  Report Type: Report from Study
  Country: FR (occurrence: FR)
  Receive Date: 20220625
  Receipt Date: 20221115
  Transmission Date: 20230113
  Serious: Yes (Hospitalization, Other)
  Sender: FDA-Public Use
  Company Number: FR-BRISTOL-MYERS SQUIBB COMPANY-2022-051761

PATIENT
  Age: 67 Year

DRUGS (2)
  1. NIVOLUMAB [Suspect]
     Active Substance: NIVOLUMAB
     Indication: Non-small cell lung cancer
     Route: 042
     Dates: start: 20220406, end: 20220505
  2. GEMZAR CHEMOTHERAPY [Concomitant]
     Route: 065
     Dates: start: 20220531

REACTIONS (4)
  - Non-small cell lung cancer [Recovered/Resolved]
  - Myocardial ischaemia [Unknown]
  - Acute kidney injury [Unknown]
  - Dry skin [Recovered/Resolved]

NARRATIVE: CASE EVENT DATE: 20220505
